FAERS Safety Report 7318559-3 (Version None)
Quarter: 2011Q1

REPORT INFORMATION
  Report Type: 
  Country: None (occurrence: None)
  Receive Date: 20110217
  Receipt Date: 20110217
  Transmission Date: 20110831
  Serious: Yes (Death, Life-Threatening, Hospitalization, Disabling, Congenital Anomaly, Other)
  Sender: FDA-Public Use
  Company Number: None

PATIENT
  Age: 20 Year
  Sex: Male
  Weight: 56 kg

DRUGS (1)
  1. CIPRO [Suspect]
     Indication: INFLAMMATION
     Dosage: 3 2 A DAY PO
     Route: 048
     Dates: start: 20100906, end: 20100907

REACTIONS (2)
  - TENDONITIS [None]
  - IMMOBILE [None]
